FAERS Safety Report 10097884 (Version 1)
Quarter: 2014Q2

REPORT INFORMATION
  Report Type: Spontaneous
  Country: US (occurrence: US)
  Receive Date: 20140423
  Receipt Date: 20140423
  Transmission Date: 20141212
  Serious: No
  Sender: FDA-Public Use
  Company Number: US-BIOGENIDEC-2014BI035803

PATIENT
  Age: 55 Year
  Sex: Female
  Weight: 71 kg

DRUGS (7)
  1. TECFIDERA [Suspect]
     Indication: MULTIPLE SCLEROSIS
     Route: 048
     Dates: start: 20140212, end: 20140409
  2. VENLAFAXINE [Concomitant]
     Indication: DEPRESSION
  3. VENLAFAXINE [Concomitant]
     Indication: BIPOLAR DISORDER
  4. SUBOXONE [Concomitant]
     Indication: BIPOLAR DISORDER
  5. SUBOXONE [Concomitant]
     Indication: DEPRESSION
  6. QUETIAPINE [Concomitant]
     Indication: BIPOLAR DISORDER
  7. QUETIAPINE [Concomitant]
     Indication: DEPRESSION

REACTIONS (5)
  - Disturbance in attention [Recovered/Resolved]
  - Fatigue [Not Recovered/Not Resolved]
  - Depression [Not Recovered/Not Resolved]
  - Crying [Recovered/Resolved]
  - Affective disorder [Recovered/Resolved]
